FAERS Safety Report 19731620 (Version 1)
Quarter: 2021Q3

REPORT INFORMATION
  Report Type: Spontaneous
  Country: DE (occurrence: DE)
  Receive Date: 20210820
  Receipt Date: 20210820
  Transmission Date: 20211014
  Serious: Yes (Other)
  Sender: FDA-Public Use
  Company Number: DE-ASTRAZENECA-2021A673237

PATIENT
  Sex: Female

DRUGS (4)
  1. RAMIPRIL AND PANTOPRAZOLE [Concomitant]
  2. ATORVASTATIN [Concomitant]
     Active Substance: ATORVASTATIN
  3. FORXIGA [Suspect]
     Active Substance: DAPAGLIFLOZIN
     Indication: TYPE 2 DIABETES MELLITUS
     Dosage: 10.0MG UNKNOWN
     Route: 048
  4. BISOPROLOL [Concomitant]
     Active Substance: BISOPROLOL

REACTIONS (7)
  - Somnolence [Unknown]
  - Blood glucose increased [Not Recovered/Not Resolved]
  - Drug ineffective [Unknown]
  - Renal pain [Unknown]
  - Nausea [Unknown]
  - Diarrhoea [Unknown]
  - Abdominal pain [Unknown]
